FAERS Safety Report 9734774 (Version 2)
Quarter: 2013Q4

REPORT INFORMATION
  Report Type: Report from Study
  Country: FR (occurrence: FR)
  Receive Date: 20131206
  Receipt Date: 20131206
  Transmission Date: 20140711
  Serious: Yes (Hospitalization, Other)
  Sender: FDA-Public Use
  Company Number: FR-ROCHE-1231655

PATIENT
  Age: 64 Year
  Sex: Female
  Weight: 55 kg

DRUGS (4)
  1. PEG-INTERFERON ALFA 2A [Suspect]
     Indication: CHRONIC HEPATITIS C
     Route: 058
     Dates: start: 20121031, end: 20130122
  2. RIBAVIRIN [Suspect]
     Indication: CHRONIC HEPATITIS C
     Route: 048
     Dates: start: 20121031, end: 20121205
  3. RIBAVIRIN [Suspect]
     Route: 048
     Dates: start: 20121206, end: 20130122
  4. MK-3034 [Suspect]
     Indication: CHRONIC HEPATITIS C
     Route: 048
     Dates: start: 20121228, end: 20130122

REACTIONS (4)
  - Hepatic cancer [Recovered/Resolved]
  - Therapeutic embolisation [Recovered/Resolved]
  - Anaemia [Not Recovered/Not Resolved]
  - Neutropenia [Recovered/Resolved]
